FAERS Safety Report 23305504 (Version 1)
Quarter: 2023Q4

REPORT INFORMATION
  Report Type: Report from Study
  Country: AR (occurrence: AR)
  Receive Date: 20231218
  Receipt Date: 20231218
  Transmission Date: 20240110
  Serious: Yes (Other)
  Sender: FDA-Public Use
  Company Number: AR-002147023-NVSC2023AR265767

PATIENT
  Age: 34 Year
  Sex: Female

DRUGS (1)
  1. COSENTYX [Suspect]
     Active Substance: SECUKINUMAB
     Indication: Product used for unknown indication
     Dosage: 300 MG, QW (4 INDUCTION DOSES)
     Route: 065
     Dates: start: 20231101

REACTIONS (1)
  - Subclavian vein thrombosis [Unknown]

NARRATIVE: CASE EVENT DATE: 20231122
